FAERS Safety Report 9890850 (Version 1)
Quarter: 2014Q1

REPORT INFORMATION
  Report Type: Spontaneous
  Country: AU (occurrence: None)
  Receive Date: 20140210
  Receipt Date: 20140210
  Transmission Date: 20141002
  Serious: Yes (Death)
  Sender: FDA-Public Use
  Company Number: NL01PV14.35292

PATIENT
  Age: 68 Year
  Sex: Male

DRUGS (4)
  1. PAROXETINE [Suspect]
  2. ZOLPIDEM TABLETS [Suspect]
  3. MIRTAZAPINE (MIRTAZAPINE) [Suspect]
  4. DULOXETINE (DULOXETINE) (DULOXETINE) [Suspect]

REACTIONS (2)
  - Drug interaction [None]
  - Toxicity to various agents [None]
